FAERS Safety Report 5384479-7 (Version None)
Quarter: 2007Q3

REPORT INFORMATION
  Report Type: 
  Country: None (occurrence: None)
  Receive Date: 20070711
  Receipt Date: 20070703
  Transmission Date: 20080115
  Serious: Yes (Disabling)
  Sender: FDA-Public Use
  Company Number: CA-PFIZER INC-2007041491

PATIENT
  Sex: Male

DRUGS (1)
  1. ZOLOFT [Suspect]
     Route: 048

REACTIONS (2)
  - DIZZINESS [None]
  - FEELING ABNORMAL [None]
